FAERS Safety Report 7954675-0 (Version None)
Quarter: 2011Q4

REPORT INFORMATION
  Report Type: 
  Country: None (occurrence: None)
  Receive Date: 20111202
  Receipt Date: 20111129
  Transmission Date: 20120403
  Serious: Yes (Other)
  Sender: FDA-Public Use
  Company Number: PHHY2011EC104945

PATIENT
  Sex: Female

DRUGS (3)
  1. ALERCET [Concomitant]
     Indication: HYPERSENSITIVITY
  2. OMEPRAZOLE [Concomitant]
     Dosage: UNK UKN, UNK
  3. ZOLEDRONOC ACID [Suspect]
     Indication: OSTEOPOROSIS
     Dosage: 5 MG, UNK
     Route: 042
     Dates: start: 20100222

REACTIONS (2)
  - ABDOMINAL PAIN UPPER [None]
  - HEPATITIS A [None]
